FAERS Safety Report 23688908 (Version 1)
Quarter: 2024Q1

REPORT INFORMATION
  Report Type: Spontaneous
  Country: US (occurrence: US)
  Receive Date: 20240329
  Receipt Date: 20240329
  Transmission Date: 20240410
  Serious: Yes (Death, Other)
  Sender: FDA-Public Use
  Company Number: US-BRISTOL-MYERS SQUIBB COMPANY-2024-049234

PATIENT
  Age: 89 Year
  Sex: Male

DRUGS (1)
  1. LENALIDOMIDE [Suspect]
     Active Substance: LENALIDOMIDE
     Indication: Rheumatoid arthritis
     Dosage: TAKE 1 CAPSULE BY MOUTH EVERY DAY ?FOR 21 DAYS ON AND 7 DAYS OFF
     Route: 048

REACTIONS (2)
  - Death [Fatal]
  - Off label use [Unknown]
